FAERS Safety Report 10126358 (Version 2)
Quarter: 2014Q4

REPORT INFORMATION
  Report Type: Spontaneous
  Country: US (occurrence: US)
  Receive Date: 20140427
  Receipt Date: 20141205
  Transmission Date: 20150528
  Serious: Yes (Hospitalization, Other)
  Sender: FDA-Public Use
  Company Number: US-BRISTOL-MYERS SQUIBB COMPANY-20634689

PATIENT
  Age: 75 Year
  Sex: Male
  Weight: 79.36 kg

DRUGS (12)
  1. METOPROLOL [Concomitant]
     Active Substance: METOPROLOL
  2. DIGOXIN. [Concomitant]
     Active Substance: DIGOXIN
     Indication: ATRIAL FIBRILLATION
  3. VIAGRA [Concomitant]
     Active Substance: SILDENAFIL CITRATE
  4. TIKOSYN [Concomitant]
     Active Substance: DOFETILIDE
  5. LOSARTAN [Concomitant]
     Active Substance: LOSARTAN
  6. CIALIS [Concomitant]
     Active Substance: TADALAFIL
  7. COUMADIN [Suspect]
     Active Substance: WARFARIN SODIUM
  8. PRADAXA [Suspect]
     Active Substance: DABIGATRAN ETEXILATE MESYLATE
  9. FUROSEMIDE. [Concomitant]
     Active Substance: FUROSEMIDE
     Indication: FLUID RETENTION
  10. XARELTO [Suspect]
     Active Substance: RIVAROXABAN
  11. NEXIUM [Concomitant]
     Active Substance: ESOMEPRAZOLE MAGNESIUM
  12. RANITIDINE [Concomitant]
     Active Substance: RANITIDINE\RANITIDINE HYDROCHLORIDE

REACTIONS (6)
  - Chest pain [Unknown]
  - Melaena [Unknown]
  - Contusion [Unknown]
  - Palpitations [Unknown]
  - Anaemia [Unknown]
  - Diarrhoea [Unknown]
